FAERS Safety Report 11084811 (Version 2)
Quarter: 2015Q2

REPORT INFORMATION
  Report Type: Spontaneous
  Country: US (occurrence: US)
  Receive Date: 20150503
  Receipt Date: 20150525
  Transmission Date: 20150821
  Serious: No
  Sender: FDA-Public Use
  Company Number: US-JNJFOC-20150317697

PATIENT
  Age: 63 Year
  Sex: Female
  Weight: 117.03 kg

DRUGS (2)
  1. XARELTO [Suspect]
     Active Substance: RIVAROXABAN
     Indication: ARTHROSCOPIC SURGERY
     Route: 048
     Dates: start: 20150107
  2. TYLENOL [Concomitant]
     Active Substance: ACETAMINOPHEN
     Indication: HEADACHE
     Route: 048
     Dates: start: 201503

REACTIONS (11)
  - Pain in extremity [Unknown]
  - Musculoskeletal stiffness [Not Recovered/Not Resolved]
  - Tenderness [Unknown]
  - Arthralgia [Unknown]
  - Drug dose omission [Unknown]
  - Malaise [Unknown]
  - Peripheral swelling [Unknown]
  - Medial tibial stress syndrome [Recovered/Resolved]
  - Muscular weakness [Unknown]
  - Arthralgia [Not Recovered/Not Resolved]
  - Headache [Recovered/Resolved]

NARRATIVE: CASE EVENT DATE: 2015
